FAERS Safety Report 5300462-1 (Version None)
Quarter: 2007Q2

REPORT INFORMATION
  Report Type: 
  Country: None (occurrence: None)
  Receive Date: 20070413
  Receipt Date: 20070413
  Transmission Date: 20071010
  Serious: No
  Sender: FDA-Public Use
  Company Number: None

PATIENT
  Age: 76 Year
  Sex: Female
  Weight: 67.586 kg

DRUGS (1)
  1. CRESTOR [Suspect]
     Indication: BLOOD CHOLESTEROL INCREASED
     Dosage: 1 TAB 1 X DAY ORAL
     Route: 048
     Dates: start: 20050701, end: 20050801

REACTIONS (7)
  - ARTHRITIS [None]
  - ASTHMA [None]
  - CHEST PAIN [None]
  - COUGH [None]
  - MUSCLE SPASMS [None]
  - PNEUMONIA [None]
  - URINARY TRACT INFECTION [None]
